FAERS Safety Report 26084255 (Version 1)
Quarter: 2025Q4

REPORT INFORMATION
  Report Type: Spontaneous
  Country: US (occurrence: US)
  Receive Date: 20251124
  Receipt Date: 20251124
  Transmission Date: 20260118
  Serious: No
  Sender: BAYER HEALTHCARE LLC
  Company Number: US-BAYER-2025A155323

PATIENT
  Age: 50 Year
  Sex: Female

DRUGS (4)
  1. ASTEPRO [Suspect]
     Active Substance: AZELASTINE HYDROCHLORIDE
     Indication: Nasopharyngitis
     Dosage: ONE SPRAY IN EACH NOSTRIL AT THE TIME ONCE. I^VE PROBABLY TAKEN IT TWICE A WEEK.
     Route: 061
  2. ASTEPRO [Suspect]
     Active Substance: AZELASTINE HYDROCHLORIDE
     Indication: Hypersensitivity
  3. ASTEPRO ALLERGY [Suspect]
     Active Substance: AZELASTINE HYDROCHLORIDE
     Indication: Nasopharyngitis
     Dosage: UNK
  4. ASTEPRO ALLERGY [Suspect]
     Active Substance: AZELASTINE HYDROCHLORIDE
     Indication: Hypersensitivity

REACTIONS (3)
  - Dizziness [Recovered/Resolved]
  - Drug ineffective [Recovered/Resolved]
  - Product after taste [Recovered/Resolved]

NARRATIVE: CASE EVENT DATE: 20251001
